FAERS Safety Report 19158650 (Version 1)
Quarter: 2021Q2

REPORT INFORMATION
  Report Type: Spontaneous
  Country: IT (occurrence: IT)
  Receive Date: 20210420
  Receipt Date: 20210420
  Transmission Date: 20210717
  Serious: Yes (Hospitalization, Other)
  Sender: FDA-Public Use
  Company Number: IT-GLAXOSMITHKLINE-IT2021EME085286

PATIENT
  Sex: Female

DRUGS (1)
  1. IMIGRAN [Suspect]
     Active Substance: SUMATRIPTAN SUCCINATE
     Indication: PAIN
     Dosage: UNK
     Route: 058

REACTIONS (5)
  - Impaired work ability [Unknown]
  - Product availability issue [Unknown]
  - Condition aggravated [Unknown]
  - Drug ineffective [Unknown]
  - Disability [Unknown]

NARRATIVE: CASE EVENT DATE: 201905
